FAERS Safety Report 14185759 (Version 5)
Quarter: 2019Q2

REPORT INFORMATION
  Report Type: Spontaneous
  Country: ES (occurrence: ES)
  Receive Date: 20171114
  Receipt Date: 20190405
  Transmission Date: 20190711
  Serious: Yes (Life-Threatening, Hospitalization, Other)
  Sender: FDA-Public Use
  Company Number: ES-ACCORD-060787

PATIENT
  Age: 63 Year
  Sex: Female

DRUGS (6)
  1. BROMAZEPAM [Concomitant]
     Active Substance: BROMAZEPAM
  2. SERTRALINE [Suspect]
     Active Substance: SERTRALINE HYDROCHLORIDE
     Indication: DEPRESSION
  3. DULOXETINE. [Concomitant]
     Active Substance: DULOXETINE
  4. OMEPRAZOLE. [Concomitant]
     Active Substance: OMEPRAZOLE
  5. IMATINIB/IMATINIB MESILATE [Interacting]
     Active Substance: IMATINIB
     Indication: CHRONIC MYELOID LEUKAEMIA
  6. DIACEREIN [Concomitant]
     Active Substance: DIACEREIN

REACTIONS (3)
  - Drug interaction [Unknown]
  - Hepatitis toxic [Unknown]
  - Vomiting [None]
